FAERS Safety Report 4849066-5 (Version None)
Quarter: 2005Q4

REPORT INFORMATION
  Report Type: 
  Country: None (occurrence: None)
  Receive Date: 20051209
  Receipt Date: 20051130
  Transmission Date: 20060501
  Serious: Yes (Death, Hospitalization, Other)
  Sender: FDA-Public Use
  Company Number: FR-JNJFOC-20050506269

PATIENT
  Age: 37 Year
  Sex: Female
  Weight: 47 kg

DRUGS (11)
  1. REMICADE [Suspect]
     Route: 042
  2. REMICADE [Suspect]
     Route: 042
  3. REMICADE [Suspect]
     Indication: RHEUMATOID ARTHRITIS
     Route: 042
  4. DEPAKENE [Concomitant]
     Route: 048
  5. DEPAKENE [Concomitant]
     Dosage: 500, 3 IN 1 DAY
     Route: 048
  6. SOLIAN [Concomitant]
     Route: 048
  7. SERETIDE [Concomitant]
     Route: 048
  8. SERETIDE [Concomitant]
     Indication: ASTHMA
     Dosage: 500
     Route: 048
  9. NOVATREX [Concomitant]
     Indication: RHEUMATOID ARTHRITIS
     Route: 048
  10. SPECIAFOLDINE [Concomitant]
     Indication: RHEUMATOID ARTHRITIS
     Route: 048
  11. CORTANCYL [Concomitant]
     Indication: RHEUMATOID ARTHRITIS
     Route: 065

REACTIONS (3)
  - ANAPHYLACTIC SHOCK [None]
  - DEATH [None]
  - FEELING HOT [None]
